FAERS Safety Report 25515085 (Version 2)
Quarter: 2025Q3

REPORT INFORMATION
  Report Type: Spontaneous
  Country: CA (occurrence: CA)
  Receive Date: 20250703
  Receipt Date: 20250817
  Transmission Date: 20251021
  Serious: Yes (Life-Threatening, Hospitalization, Disabling, Other)
  Sender: BRISTOL-MYERS SQUIBB COMPANY
  Company Number: CA-BRISTOL-MYERS SQUIBB COMPANY-2025-093778

PATIENT
  Age: 40 Year
  Sex: Female
  Weight: 96 kg

DRUGS (108)
  1. ORENCIA [Suspect]
     Active Substance: ABATACEPT
     Indication: Rheumatoid arthritis
  2. AIMOVIG [Concomitant]
     Active Substance: ERENUMAB-AOOE
     Indication: Migraine
     Route: 058
  3. AIMOVIG [Concomitant]
     Active Substance: ERENUMAB-AOOE
  4. CANDESARTAN [Concomitant]
     Active Substance: CANDESARTAN
     Indication: Migraine
  5. CORTISONE [Concomitant]
     Active Substance: CORTISONE
     Indication: Product used for unknown indication
  6. CORTISONE ACETATE [Concomitant]
     Active Substance: CORTISONE ACETATE
     Indication: Rheumatoid arthritis
     Route: 048
  7. CORTISONE ACETATE [Concomitant]
     Active Substance: CORTISONE ACETATE
     Route: 048
  8. CORTISONE ACETATE [Concomitant]
     Active Substance: CORTISONE ACETATE
  9. CORTISONE ACETATE [Concomitant]
     Active Substance: CORTISONE ACETATE
     Route: 048
  10. CORTISONE ACETATE [Concomitant]
     Active Substance: CORTISONE ACETATE
     Route: 048
  11. CORTISONE ACETATE [Concomitant]
     Active Substance: CORTISONE ACETATE
  12. DESOXIMETASONE [Concomitant]
     Active Substance: DESOXIMETASONE
     Indication: Rheumatoid arthritis
     Route: 058
  13. DESOXIMETASONE [Concomitant]
     Active Substance: DESOXIMETASONE
     Route: 058
  14. DOMPERIDONE MALEATE [Concomitant]
     Active Substance: DOMPERIDONE MALEATE
     Indication: Product used for unknown indication
  15. DOMPERIDONE MALEATE [Concomitant]
     Active Substance: DOMPERIDONE MALEATE
  16. ENBREL [Concomitant]
     Active Substance: ETANERCEPT
     Indication: Rheumatoid arthritis
     Route: 058
  17. ENBREL [Concomitant]
     Active Substance: ETANERCEPT
  18. ENBREL [Concomitant]
     Active Substance: ETANERCEPT
     Route: 058
  19. ENBREL [Concomitant]
     Active Substance: ETANERCEPT
  20. ENBREL [Concomitant]
     Active Substance: ETANERCEPT
     Route: 058
  21. FLUMETHASONE PIVALATE [Concomitant]
     Active Substance: FLUMETHASONE PIVALATE
     Indication: Product used for unknown indication
  22. FLUMETHASONE\SALICYLIC ACID [Concomitant]
     Active Substance: FLUMETHASONE\SALICYLIC ACID
     Indication: Product used for unknown indication
  23. FOLIC ACID [Concomitant]
     Active Substance: FOLIC ACID
     Indication: Rheumatoid arthritis
     Route: 048
  24. FOLIC ACID [Concomitant]
     Active Substance: FOLIC ACID
     Route: 058
  25. FOLIC ACID [Concomitant]
     Active Substance: FOLIC ACID
     Route: 048
  26. FOLIC ACID [Concomitant]
     Active Substance: FOLIC ACID
     Route: 048
  27. FOLIC ACID [Concomitant]
     Active Substance: FOLIC ACID
     Route: 048
  28. FOLIC ACID [Concomitant]
     Active Substance: FOLIC ACID
  29. FOSAMAX [Concomitant]
     Active Substance: ALENDRONATE SODIUM
     Indication: Rheumatoid arthritis
     Route: 058
  30. FOSAMAX [Concomitant]
     Active Substance: ALENDRONATE SODIUM
     Route: 048
  31. FOSAMAX [Concomitant]
     Active Substance: ALENDRONATE SODIUM
     Route: 016
  32. FOSAMAX [Concomitant]
     Active Substance: ALENDRONATE SODIUM
     Route: 016
  33. GOLD SODIUM THIOMALATE [Concomitant]
     Active Substance: GOLD SODIUM THIOMALATE
     Indication: Product used for unknown indication
     Route: 030
  34. GOLD SODIUM THIOMALATE [Concomitant]
     Active Substance: GOLD SODIUM THIOMALATE
     Route: 030
  35. HUMIRA [Concomitant]
     Active Substance: ADALIMUMAB
     Indication: Rheumatoid arthritis
     Route: 058
  36. HUMIRA [Concomitant]
     Active Substance: ADALIMUMAB
  37. HUMIRA [Concomitant]
     Active Substance: ADALIMUMAB
     Route: 058
  38. HYDROXYCHLOROQUINE [Concomitant]
     Active Substance: HYDROXYCHLOROQUINE
     Indication: Rheumatoid arthritis
     Route: 058
  39. HYDROXYCHLOROQUINE [Concomitant]
     Active Substance: HYDROXYCHLOROQUINE
     Route: 048
  40. HYDROXYCHLOROQUINE [Concomitant]
     Active Substance: HYDROXYCHLOROQUINE
     Route: 048
  41. HYRIMOZ [Concomitant]
     Active Substance: ADALIMUMAB-ADAZ
     Indication: Rheumatoid arthritis
     Route: 058
  42. ISOPROPYL ALCOHOL [Concomitant]
     Active Substance: ISOPROPYL ALCOHOL
     Indication: Product used for unknown indication
     Route: 048
  43. ISOPROPYL ALCOHOL [Concomitant]
     Active Substance: ISOPROPYL ALCOHOL
     Route: 048
  44. ISOPROPYL ALCOHOL [Concomitant]
     Active Substance: ISOPROPYL ALCOHOL
     Route: 048
  45. MAGNESIUM CITRATE [Concomitant]
     Active Substance: MAGNESIUM CITRATE
     Indication: Product used for unknown indication
  46. METHOTREXATE [Concomitant]
     Active Substance: METHOTREXATE
     Indication: Rheumatoid arthritis
  47. METHOTREXATE [Concomitant]
     Active Substance: METHOTREXATE
     Route: 058
  48. METHOTREXATE [Concomitant]
     Active Substance: METHOTREXATE
     Route: 013
  49. METHOTREXATE [Concomitant]
     Active Substance: METHOTREXATE
     Route: 048
  50. METHOTREXATE [Concomitant]
     Active Substance: METHOTREXATE
     Route: 048
  51. METHOTREXATE [Concomitant]
     Active Substance: METHOTREXATE
     Route: 048
  52. METHOTREXATE [Concomitant]
     Active Substance: METHOTREXATE
  53. METHOTREXATE [Concomitant]
     Active Substance: METHOTREXATE
  54. METHYLPREDNISOLONE ACETATE [Concomitant]
     Active Substance: METHYLPREDNISOLONE ACETATE
     Indication: Product used for unknown indication
  55. METHYLPREDNISOLONE SODIUM SUCCINATE [Concomitant]
     Active Substance: METHYLPREDNISOLONE SODIUM SUCCINATE
     Indication: Product used for unknown indication
  56. MINOCYCLINE HYDROCHLORIDE [Concomitant]
     Active Substance: MINOCYCLINE HYDROCHLORIDE
     Indication: Rheumatoid arthritis
  57. MYOCHRYSINE [Concomitant]
     Active Substance: GOLD SODIUM THIOMALATE
     Indication: Rheumatoid arthritis
     Route: 030
  58. NAPROXEN [Concomitant]
     Active Substance: NAPROXEN
     Indication: Product used for unknown indication
  59. NAPROXEN SODIUM [Concomitant]
     Active Substance: NAPROXEN SODIUM
     Indication: Rheumatoid arthritis
  60. NICOTINAMIDE [Concomitant]
     Active Substance: NIACINAMIDE
     Indication: Product used for unknown indication
  61. NUCALA [Concomitant]
     Active Substance: MEPOLIZUMAB
     Indication: Product used for unknown indication
  62. OXYCODONE HYDROCHLORIDE [Concomitant]
     Active Substance: OXYCODONE HYDROCHLORIDE
     Indication: Product used for unknown indication
  63. PERIOGARD [Concomitant]
     Active Substance: CHLORHEXIDINE GLUCONATE
     Indication: Product used for unknown indication
     Route: 002
  64. PREDNISONE [Concomitant]
     Active Substance: PREDNISONE
     Indication: Rheumatoid arthritis
     Route: 048
  65. RAMIPRIL [Concomitant]
     Active Substance: RAMIPRIL
     Indication: Rheumatoid arthritis
     Route: 042
  66. CETIRIZINE HYDROCHLORIDE\PSEUDOEPHEDRINE HYDROCHLORIDE [Concomitant]
     Active Substance: CETIRIZINE HYDROCHLORIDE\PSEUDOEPHEDRINE HYDROCHLORIDE
     Indication: Rheumatoid arthritis
     Route: 042
  67. CETIRIZINE HYDROCHLORIDE\PSEUDOEPHEDRINE HYDROCHLORIDE [Concomitant]
     Active Substance: CETIRIZINE HYDROCHLORIDE\PSEUDOEPHEDRINE HYDROCHLORIDE
     Route: 042
  68. REMICADE [Concomitant]
     Active Substance: INFLIXIMAB
     Indication: Rheumatoid arthritis
     Route: 042
  69. REMICADE [Concomitant]
     Active Substance: INFLIXIMAB
     Route: 058
  70. REMICADE [Concomitant]
     Active Substance: INFLIXIMAB
     Route: 058
  71. RITUXIMAB [Concomitant]
     Active Substance: RITUXIMAB
     Indication: Rheumatoid arthritis
     Route: 042
  72. RITUXIMAB [Concomitant]
     Active Substance: RITUXIMAB
  73. RITUXIMAB [Concomitant]
     Active Substance: RITUXIMAB
     Route: 058
  74. RITUXIMAB [Concomitant]
     Active Substance: RITUXIMAB
  75. RITUXIMAB [Concomitant]
     Active Substance: RITUXIMAB
     Route: 043
  76. RITUXIMAB [Concomitant]
     Active Substance: RITUXIMAB
  77. RITUXIMAB [Concomitant]
     Active Substance: RITUXIMAB
  78. RITUXIMAB [Concomitant]
     Active Substance: RITUXIMAB
  79. ALENDRONATE SODIUM [Concomitant]
     Active Substance: ALENDRONATE SODIUM
     Indication: Rheumatoid arthritis
     Route: 048
  80. ALENDRONATE SODIUM [Concomitant]
     Active Substance: ALENDRONATE SODIUM
  81. LEFLUNOMIDE [Concomitant]
     Active Substance: LEFLUNOMIDE
     Indication: Rheumatoid arthritis
  82. LEFLUNOMIDE [Concomitant]
     Active Substance: LEFLUNOMIDE
  83. LEFLUNOMIDE [Concomitant]
     Active Substance: LEFLUNOMIDE
  84. SIMPONI [Concomitant]
     Active Substance: GOLIMUMAB
     Indication: Rheumatoid arthritis
     Route: 058
  85. SIMPONI [Concomitant]
     Active Substance: GOLIMUMAB
     Route: 058
  86. STELARA [Concomitant]
     Active Substance: USTEKINUMAB
     Indication: Product used for unknown indication
  87. STELARA [Concomitant]
     Active Substance: USTEKINUMAB
     Route: 058
  88. SULFASALAZINE [Concomitant]
     Active Substance: SULFASALAZINE
     Indication: Rheumatoid arthritis
     Route: 048
  89. SULFASALAZINE [Concomitant]
     Active Substance: SULFASALAZINE
  90. SULFASALAZINE [Concomitant]
     Active Substance: SULFASALAZINE
  91. SULFASALAZINE [Concomitant]
     Active Substance: SULFASALAZINE
  92. SULFASALAZINE [Concomitant]
     Active Substance: SULFASALAZINE
  93. SULFASALAZINE [Concomitant]
     Active Substance: SULFASALAZINE
  94. SULFASALAZINE [Concomitant]
     Active Substance: SULFASALAZINE
     Route: 058
  95. SULFASALAZINE [Concomitant]
     Active Substance: SULFASALAZINE
     Route: 058
  96. TOPIRAMATE [Concomitant]
     Active Substance: TOPIRAMATE
     Indication: Product used for unknown indication
  97. TOPIRAMATE [Concomitant]
     Active Substance: TOPIRAMATE
  98. TOPIRAMATE [Concomitant]
     Active Substance: TOPIRAMATE
  99. VITAMIN C [Concomitant]
     Active Substance: ASCORBIC ACID
     Indication: Product used for unknown indication
  100. VITAMIN C [Concomitant]
     Active Substance: ASCORBIC ACID
  101. DICLOFENAC [Concomitant]
     Active Substance: DICLOFENAC
     Indication: Product used for unknown indication
  102. DICLOFENAC [Concomitant]
     Active Substance: DICLOFENAC
     Route: 058
  103. XELJANZ [Concomitant]
     Active Substance: TOFACITINIB CITRATE
     Indication: Rheumatoid arthritis
     Route: 048
  104. XELJANZ [Concomitant]
     Active Substance: TOFACITINIB CITRATE
     Route: 048
  105. COSENTYX [Concomitant]
     Active Substance: SECUKINUMAB
     Indication: Psoriatic arthropathy
  106. COSENTYX [Concomitant]
     Active Substance: SECUKINUMAB
     Indication: Product used for unknown indication
  107. ERELZI [Concomitant]
     Active Substance: ETANERCEPT-SZZS
     Indication: Product used for unknown indication
  108. DICLOFENAC SODIUM [Concomitant]
     Active Substance: DICLOFENAC SODIUM
     Indication: Product used for unknown indication

REACTIONS (54)
  - Abdominal discomfort [Unknown]
  - Abdominal distension [Unknown]
  - Abdominal pain upper [Unknown]
  - Anti-cyclic citrullinated peptide antibody positive [Unknown]
  - Arthralgia [Unknown]
  - Back injury [Unknown]
  - C-reactive protein abnormal [Unknown]
  - Condition aggravated [Unknown]
  - Confusional state [Unknown]
  - Drug hypersensitivity [Unknown]
  - Drug ineffective [Unknown]
  - Drug intolerance [Unknown]
  - Dry mouth [Unknown]
  - Dyspepsia [Unknown]
  - Dyspnoea [Unknown]
  - Facet joint syndrome [Unknown]
  - Fall [Unknown]
  - Fatigue [Unknown]
  - Fibromyalgia [Unknown]
  - Finger deformity [Unknown]
  - Folliculitis [Unknown]
  - Gait inability [Unknown]
  - Gastrooesophageal reflux disease [Unknown]
  - Glossodynia [Unknown]
  - Hypercholesterolaemia [Unknown]
  - Ill-defined disorder [Unknown]
  - Impaired healing [Unknown]
  - Injury [Unknown]
  - Insomnia [Unknown]
  - Joint range of motion decreased [Unknown]
  - Lip dry [Unknown]
  - Migraine [Unknown]
  - Muscle injury [Unknown]
  - Muscle spasms [Unknown]
  - Nail disorder [Unknown]
  - Nausea [Unknown]
  - Neck pain [Unknown]
  - Night sweats [Unknown]
  - Onychomadesis [Unknown]
  - Osteoarthritis [Unknown]
  - Pain [Unknown]
  - Product label confusion [Unknown]
  - Product quality issue [Unknown]
  - Rash [Unknown]
  - Sleep disorder [Unknown]
  - Taste disorder [Unknown]
  - Therapeutic product effect decreased [Unknown]
  - Treatment failure [Unknown]
  - Weight increased [Unknown]
  - Wheezing [Unknown]
  - Wound [Unknown]
  - Hospitalisation [Unknown]
  - Adverse event [Unknown]
  - Off label use [Unknown]
